FAERS Safety Report 18242997 (Version 1)
Quarter: 2020Q3

REPORT INFORMATION
  Report Type: Spontaneous
  Country: US (occurrence: US)
  Receive Date: 20200908
  Receipt Date: 20200908
  Transmission Date: 20201103
  Serious: Yes (Other)
  Sender: FDA-Public Use
  Company Number: None

PATIENT
  Age: 13 Year
  Sex: Female

DRUGS (4)
  1. SINGULAIR [Suspect]
     Active Substance: MONTELUKAST SODIUM
     Indication: ASTHMA
     Route: 048
     Dates: start: 20121101, end: 20131101
  2. ZYRTEC [Concomitant]
     Active Substance: CETIRIZINE HYDROCHLORIDE
  3. ALBUTEROL INHALER [Concomitant]
     Active Substance: ALBUTEROL
  4. SINGULAIR [Suspect]
     Active Substance: MONTELUKAST SODIUM
     Indication: MULTIPLE ALLERGIES
     Route: 048
     Dates: start: 20121101, end: 20131101

REACTIONS (12)
  - Incontinence [None]
  - Agitation [None]
  - Hostility [None]
  - Panic disorder [None]
  - Aggression [None]
  - Obsessive-compulsive disorder [None]
  - Crying [None]
  - Anxiety [None]
  - Dyspnoea [None]
  - Hallucination [None]
  - Anger [None]
  - Irritability [None]

NARRATIVE: CASE EVENT DATE: 20200823
